FAERS Safety Report 7396592-3 (Version None)
Quarter: 2011Q1

REPORT INFORMATION
  Report Type: 
  Country: None (occurrence: None)
  Receive Date: 20110331
  Receipt Date: 20110331
  Transmission Date: 20110831
  Serious: Yes (Life-Threatening)
  Sender: FDA-Public Use
  Company Number: None

PATIENT
  Age: 72 Year
  Sex: Female
  Weight: 53.5244 kg

DRUGS (1)
  1. PHENYTOIN [Suspect]
     Indication: EPILEPSY
     Dosage: 100 MG  3 PER DAY ORAL
     Route: 048

REACTIONS (6)
  - FALL [None]
  - ANTICONVULSANT DRUG LEVEL INCREASED [None]
  - ANTICONVULSANT DRUG LEVEL DECREASED [None]
  - STERNAL FRACTURE [None]
  - PRODUCT SUBSTITUTION ISSUE [None]
  - GAIT DISTURBANCE [None]
